FAERS Safety Report 16348625 (Version 1)
Quarter: 2019Q2

REPORT INFORMATION
  Report Type: Spontaneous
  Country: CA (occurrence: CA)
  Receive Date: 20190523
  Receipt Date: 20190523
  Transmission Date: 20190711
  Serious: Yes (Hospitalization, Other)
  Sender: FDA-Public Use
  Company Number: CA-TEVA-2019-CA-1051586

PATIENT
  Age: 69 Year
  Sex: Female

DRUGS (19)
  1. IRON [Concomitant]
     Active Substance: IRON
  2. WELLBUTRIN [Concomitant]
     Active Substance: BUPROPION HYDROCHLORIDE
     Dosage: TABLET (EXTENDED RELEASE)
  3. ADVAIR HFA [Concomitant]
     Active Substance: FLUTICASONE PROPIONATE\SALMETEROL XINAFOATE
  4. LASIX [Concomitant]
     Active Substance: FUROSEMIDE
  5. LIPITOR [Concomitant]
     Active Substance: ATORVASTATIN CALCIUM
  6. SPIRIVA [Concomitant]
     Active Substance: TIOTROPIUM BROMIDE MONOHYDRATE
  7. METOLAZONE. [Concomitant]
     Active Substance: METOLAZONE
  8. SPIRONOLACTONE. [Concomitant]
     Active Substance: SPIRONOLACTONE
  9. SILDENAFIL CITRATE. [Suspect]
     Active Substance: SILDENAFIL CITRATE
     Indication: PULMONARY ARTERIAL HYPERTENSION
     Route: 048
  10. TYLENOL [Concomitant]
     Active Substance: ACETAMINOPHEN
  11. DIOVAN [Concomitant]
     Active Substance: VALSARTAN
  12. ERGOCALCIFEROL. [Concomitant]
     Active Substance: ERGOCALCIFEROL
  13. RABEPRAZOLE [Concomitant]
     Active Substance: RABEPRAZOLE
  14. SENOKOT [Concomitant]
     Active Substance: SENNOSIDES
  15. ALLOPURINOL. [Concomitant]
     Active Substance: ALLOPURINOL
  16. ESTRADIOL. [Concomitant]
     Active Substance: ESTRADIOL
  17. VITAMIN K1 [Concomitant]
     Active Substance: PHYTONADIONE
  18. VOLIBRIS [Concomitant]
     Active Substance: AMBRISENTAN
  19. WARFARIN [Concomitant]
     Active Substance: WARFARIN

REACTIONS (5)
  - Haematemesis [Recovering/Resolving]
  - Gastric haemorrhage [Recovering/Resolving]
  - Flatulence [Recovering/Resolving]
  - Haematochezia [Recovering/Resolving]
  - Eructation [Recovering/Resolving]
